FAERS Safety Report 23090474 (Version 1)
Quarter: 2023Q4

REPORT INFORMATION
  Report Type: Spontaneous
  Country: JP (occurrence: JP)
  Receive Date: 20231020
  Receipt Date: 20231020
  Transmission Date: 20240109
  Serious: Yes (Hospitalization, Other)
  Sender: FDA-Public Use
  Company Number: JP-PFIZER INC-202300330749

PATIENT
  Sex: Female

DRUGS (2)
  1. AZITHROMYCIN DIHYDRATE [Suspect]
     Active Substance: AZITHROMYCIN DIHYDRATE
     Indication: Sinusitis
     Dosage: UNK
     Route: 048
     Dates: start: 20231008, end: 20231010
  2. AZITHROMYCIN DIHYDRATE [Suspect]
     Active Substance: AZITHROMYCIN DIHYDRATE
     Dosage: UNK
     Route: 048
     Dates: start: 20231014, end: 20231016

REACTIONS (2)
  - Intestinal obstruction [Unknown]
  - Drug ineffective [Unknown]
